FAERS Safety Report 8045025-2 (Version None)
Quarter: 2012Q1

REPORT INFORMATION
  Report Type: 
  Country: None (occurrence: None)
  Receive Date: 20120113
  Receipt Date: 20120111
  Transmission Date: 20120608
  Serious: Yes (Death, Other)
  Sender: FDA-Public Use
  Company Number: PHHY2011AU107950

PATIENT
  Sex: Female

DRUGS (6)
  1. CLOPIDOGREL BISULFATE [Concomitant]
     Dosage: UNK UKN, UNK
  2. AMLODIPINE [Concomitant]
     Dosage: UNK UKN, UNK
  3. BETA BLOCKING AGENTS [Concomitant]
     Dosage: UNK UKN, UNK
  4. SIMVASTATIN [Concomitant]
     Dosage: UNK UKN, UNK
  5. ZOLEDRONOC ACID [Suspect]
     Indication: OSTEOPOROSIS
     Dosage: 5 MG,
     Route: 042
     Dates: start: 20100630
  6. NOTEN [Concomitant]
     Dosage: UNK UKN, UNK

REACTIONS (4)
  - MALAISE [None]
  - RENAL FAILURE CHRONIC [None]
  - RENAL FAILURE ACUTE [None]
  - DEHYDRATION [None]
